FAERS Safety Report 11844620 (Version 1)
Quarter: 2015Q4

REPORT INFORMATION
  Report Type: Spontaneous
  Country: US (occurrence: None)
  Receive Date: 20151216
  Receipt Date: 20151216
  Transmission Date: 20160305
  Serious: Yes (Disabling, Other)
  Sender: FDA-Public Use
  Company Number: None

PATIENT
  Age: 55 Year
  Sex: Female
  Weight: 49.9 kg

DRUGS (21)
  1. LEVOFLOXACIN 500 MG LUPIN PHARMACEUTICALS [Suspect]
     Active Substance: LEVOFLOXACIN
     Indication: PERICHONDRITIS
     Route: 048
     Dates: start: 20121117, end: 20121126
  2. VITAMIN D [Concomitant]
     Active Substance: CHOLECALCIFEROL
  3. L GLUTAMINE [Concomitant]
     Active Substance: GLUTAMINE
  4. CALCIUM [Concomitant]
     Active Substance: CALCIUM
  5. VITAMIN E [Concomitant]
     Active Substance: .ALPHA.-TOCOPHEROL
  6. VITAMIN C [Concomitant]
     Active Substance: ASCORBIC ACID
  7. PROBIOTIC [Concomitant]
     Active Substance: PROBIOTICS NOS
  8. CURCUMIN [Concomitant]
     Active Substance: CURCUMIN
  9. COQ10 [Concomitant]
     Active Substance: UBIDECARENONE
  10. LEVOTHYROXINE. [Concomitant]
     Active Substance: LEVOTHYROXINE
  11. VAGIFEM [Concomitant]
     Active Substance: ESTRADIOL
  12. AMITRIPTYLINE [Concomitant]
     Active Substance: AMITRIPTYLINE
  13. MAGNESIUM [Concomitant]
     Active Substance: MAGNESIUM
  14. ALC [Concomitant]
  15. ALA [Concomitant]
  16. NAC [Concomitant]
  17. VITAMIN K [Concomitant]
     Active Substance: PHYTONADIONE
  18. MULTIVITAMIN [Concomitant]
     Active Substance: VITAMINS
  19. VITAMIN A [Concomitant]
     Active Substance: VITAMIN A
  20. MITO-Q [Concomitant]
  21. FISH OIL [Concomitant]
     Active Substance: FISH OIL

REACTIONS (22)
  - Diarrhoea [None]
  - Tibia fracture [None]
  - Ankle fracture [None]
  - Pain [None]
  - Alopecia [None]
  - Discomfort [None]
  - Liver disorder [None]
  - Neuropathy peripheral [None]
  - Toxicity to various agents [None]
  - Hypoglycaemia [None]
  - Eye contusion [None]
  - Arthralgia [None]
  - Odynophagia [None]
  - Lymphadenopathy [None]
  - Neutrophil count decreased [None]
  - Contusion [None]
  - White blood cell count decreased [None]
  - Joint swelling [None]
  - Bursitis [None]
  - Pruritus [None]
  - Syncope [None]
  - Insomnia [None]

NARRATIVE: CASE EVENT DATE: 20121116
